FAERS Safety Report 14157547 (Version 2)
Quarter: 2017Q4

REPORT INFORMATION
  Report Type: Spontaneous
  Country: US (occurrence: US)
  Receive Date: 20171103
  Receipt Date: 20171107
  Transmission Date: 20180321
  Serious: No
  Sender: FDA-Public Use
  Company Number: US-ASTRAZENECA-2017SF11875

PATIENT
  Age: 23303 Day
  Sex: Male
  Weight: 136.1 kg

DRUGS (4)
  1. AMENDA [Concomitant]
     Indication: CEREBRAL DISORDER
     Dosage: TWO TIMES A DAY
     Route: 048
  2. SYMBICORT [Suspect]
     Active Substance: BUDESONIDE\FORMOTEROL FUMARATE DIHYDRATE
     Indication: LUNG DISORDER
     Dosage: 80/4.5 MCG, 2 PUFFS, TWO TIMES A DAY
     Route: 055
     Dates: start: 20171031
  3. ATENOLOL. [Suspect]
     Active Substance: ATENOLOL
     Indication: BLOOD PRESSURE ABNORMAL
     Route: 065
  4. THYROID [Concomitant]
     Active Substance: LEVOTHYROXINE\LIOTHYRONINE
     Dosage: DAILY
     Route: 048

REACTIONS (11)
  - Dementia [Not Recovered/Not Resolved]
  - Product use complaint [Unknown]
  - Product use in unapproved indication [Unknown]
  - Hyperventilation [Recovered/Resolved]
  - Hypertension [Unknown]
  - Dyspnoea [Unknown]
  - Wrong technique in product usage process [Unknown]
  - Dizziness [Recovered/Resolved]
  - Chronic obstructive pulmonary disease [Unknown]
  - Irritability [Unknown]
  - Off label use [Not Recovered/Not Resolved]

NARRATIVE: CASE EVENT DATE: 20171031
